FAERS Safety Report 13028520 (Version 2)
Quarter: 2017Q1

REPORT INFORMATION
  Report Type: Spontaneous
  Country: IL (occurrence: IL)
  Receive Date: 20161214
  Receipt Date: 20170105
  Transmission Date: 20170428
  Serious: Yes (Other)
  Sender: FDA-Public Use
  Company Number: IL-BAYER-2016-233048

PATIENT
  Age: 76 Year
  Sex: Male

DRUGS (1)
  1. ACETYLSALICYLIC ACID({=100 MG) [Suspect]
     Active Substance: ASPIRIN
     Indication: PLASMA CELL MYELOMA

REACTIONS (1)
  - Acute kidney injury [None]
